FAERS Safety Report 17502160 (Version 1)
Quarter: 2020Q1

REPORT INFORMATION
  Report Type: Spontaneous
  Country: US (occurrence: US)
  Receive Date: 20200224
  Receipt Date: 20200224
  Transmission Date: 20200409
  Serious: Yes (Disabling, Other)
  Sender: FDA-Public Use
  Company Number: None

PATIENT
  Age: 41 Year
  Sex: Female
  Weight: 66.68 kg

DRUGS (8)
  1. LYRICA [Suspect]
     Active Substance: PREGABALIN
     Indication: COMPLEX REGIONAL PAIN SYNDROME
     Dosage: ?  1 TABLET TWICE A DAY MOUNTH
     Route: 048
     Dates: start: 20180306, end: 201912
  2. LINZESS [Concomitant]
     Active Substance: LINACLOTIDE
  3. ADDERALL [Concomitant]
     Active Substance: AMPHETAMINE ASPARTATE\AMPHETAMINE SULFATE\DEXTROAMPHETAMINE SACCHARATE\DEXTROAMPHETAMINE SULFATE
  4. HYOSCYAMINE. [Concomitant]
     Active Substance: HYOSCYAMINE
  5. DOCUSATE/SENOSIDE [Concomitant]
  6. DOCUSATE/SENNOSIDE [Concomitant]
  7. WELLBUTRIN [Concomitant]
     Active Substance: BUPROPION HYDROCHLORIDE
  8. VALIUM [Concomitant]
     Active Substance: DIAZEPAM

REACTIONS (9)
  - Peripheral swelling [None]
  - Memory impairment [None]
  - Eye haemorrhage [None]
  - Otitis media [None]
  - Functional gastrointestinal disorder [None]
  - Balance disorder [None]
  - Fall [None]
  - Cellulitis [None]
  - Syncope [None]

NARRATIVE: CASE EVENT DATE: 20190204
